FAERS Safety Report 9104222 (Version 1)
Quarter: 2013Q1

REPORT INFORMATION
  Report Type: Spontaneous
  Country: CA (occurrence: CA)
  Receive Date: 20130219
  Receipt Date: 20130219
  Transmission Date: 20140127
  Serious: Yes (Hospitalization, Other)
  Sender: FDA-Public Use
  Company Number: CA-PFIZER INC-2013057795

PATIENT
  Age: 44 Year
  Sex: Male

DRUGS (1)
  1. CELEBREX [Suspect]
     Dosage: 200 MG, 1X/DAY
     Dates: start: 20000101, end: 20041231

REACTIONS (2)
  - Acute myocardial infarction [Recovered/Resolved]
  - Arteriovenous fistula [Unknown]
